FAERS Safety Report 6689331-2 (Version None)
Quarter: 2010Q2

REPORT INFORMATION
  Report Type: 
  Country: None (occurrence: None)
  Receive Date: 20100416
  Receipt Date: 20100402
  Transmission Date: 20101027
  Serious: Yes (Hospitalization)
  Sender: FDA-Public Use
  Company Number: 2010BI012304

PATIENT
  Age: 64 Year
  Sex: Male

DRUGS (3)
  1. ZEVALIN [Suspect]
     Indication: NON-HODGKIN'S LYMPHOMA
     Dosage: 1.2 MCI/KG; IV
     Route: 042
     Dates: start: 20080301, end: 20080301
  2. CON MEDS [Concomitant]
  3. MELPHALAN HYDROCHLORIDE [Concomitant]

REACTIONS (3)
  - BRONCHOPULMONARY ASPERGILLOSIS [None]
  - FEBRILE NEUTROPENIA [None]
  - IMMUNE RECONSTITUTION SYNDROME [None]
